FAERS Safety Report 9139176 (Version 1)
Quarter: 2013Q1

REPORT INFORMATION
  Report Type: Spontaneous
  Country: US (occurrence: US)
  Receive Date: 20130305
  Receipt Date: 20130305
  Transmission Date: 20140127
  Serious: Yes (Other)
  Sender: FDA-Public Use
  Company Number: US-ENDO PHARMACEUTICALS INC.-SPLN20120150

PATIENT
  Sex: Female
  Weight: 47.7 kg

DRUGS (3)
  1. SUPPRELIN LA [Suspect]
     Indication: PRECOCIOUS PUBERTY
     Route: 058
     Dates: start: 2011
  2. SUPPRELIN LA [Suspect]
     Route: 058
     Dates: start: 2010
  3. SUPPRELIN LA [Suspect]
     Route: 058
     Dates: start: 2012

REACTIONS (2)
  - Convulsion [Not Recovered/Not Resolved]
  - Procedural complication [Unknown]
